FAERS Safety Report 8934628 (Version 1)
Quarter: 2012Q4

REPORT INFORMATION
  Report Type: 
  Country: GB (occurrence: GB)
  Receive Date: 20121129
  Receipt Date: 20121129
  Transmission Date: 20130627
  Serious: Yes (Hospitalization, Other)
  Sender: FDA-Public Use
  Company Number: GB-ELI_LILLY_AND_COMPANY-GB201211005709

PATIENT
  Sex: Female

DRUGS (1)
  1. CYMBALTA [Suspect]

REACTIONS (10)
  - Stevens-Johnson syndrome [Unknown]
  - Blister [Unknown]
  - Depressed level of consciousness [Unknown]
  - Haematemesis [Unknown]
  - Visual impairment [Unknown]
  - Malaise [Unknown]
  - Memory impairment [Unknown]
  - Influenza like illness [Unknown]
  - Dyspnoea [Unknown]
  - Pyrexia [Unknown]
